FAERS Safety Report 25764413 (Version 1)
Quarter: 2025Q3

REPORT INFORMATION
  Report Type: Spontaneous
  Country: US (occurrence: US)
  Receive Date: 20250905
  Receipt Date: 20250905
  Transmission Date: 20251020
  Serious: No
  Sender: DOMPE FARMACEUTICI
  Company Number: US-FARMAPROD-202502-0448

PATIENT
  Sex: Female

DRUGS (15)
  1. OXERVATE [Suspect]
     Active Substance: CENEGERMIN-BKBJ
     Indication: Neurotrophic keratopathy
     Route: 047
     Dates: start: 20250106
  2. MURO-128 [Concomitant]
  3. MURO-128 [Concomitant]
  4. EZETIMIBE [Concomitant]
     Active Substance: EZETIMIBE
  5. FISH OIL [Concomitant]
     Active Substance: FISH OIL
  6. PRENATAL MULTI [Concomitant]
  7. ASPIRIN [Concomitant]
     Active Substance: ASPIRIN
  8. FUROSEMIDE [Concomitant]
     Active Substance: FUROSEMIDE
  9. JARDIANCE [Concomitant]
     Active Substance: EMPAGLIFLOZIN
  10. FINASTERIDE [Concomitant]
     Active Substance: FINASTERIDE
  11. MINOXIDIL [Concomitant]
     Active Substance: MINOXIDIL
  12. GLIPIZIDE [Concomitant]
     Active Substance: GLIPIZIDE
  13. METFORMIN HYDROCHLORIDE [Concomitant]
     Active Substance: METFORMIN HYDROCHLORIDE
  14. NOVOLIN R [Concomitant]
     Active Substance: INSULIN HUMAN
  15. OZEMPIC [Concomitant]
     Active Substance: SEMAGLUTIDE

REACTIONS (2)
  - Eye pain [Unknown]
  - Eye discharge [Unknown]
